FAERS Safety Report 6258670-1 (Version None)
Quarter: 2009Q3

REPORT INFORMATION
  Report Type: 
  Country: None (occurrence: None)
  Receive Date: 20090702
  Receipt Date: 20090618
  Transmission Date: 20100115
  Serious: Yes (Hospitalization)
  Sender: FDA-Public Use
  Company Number: 2009-198520-NL

PATIENT
  Age: 28 Year
  Sex: Female
  Weight: 66.3 kg

DRUGS (1)
  1. NUVARING [Suspect]
     Indication: CONTRACEPTION
     Dates: start: 20081011

REACTIONS (2)
  - FEELING ABNORMAL [None]
  - PREGNANCY WITH CONTRACEPTIVE DEVICE [None]
